FAERS Safety Report 7578346-8 (Version None)
Quarter: 2011Q2

REPORT INFORMATION
  Report Type: 
  Country: None (occurrence: None)
  Receive Date: 20110628
  Receipt Date: 20110615
  Transmission Date: 20111010
  Serious: Yes (Hospitalization, Other)
  Sender: FDA-Public Use
  Company Number: US-BAYER-2011-018101

PATIENT
  Age: 30 Year
  Sex: Female

DRUGS (6)
  1. APAP W/ CODEINE [Concomitant]
     Dosage: 30 MG, UNK
  2. DROSPIRENONE AND ETHINYL ESTRADIOL [Suspect]
     Indication: ACNE
     Dosage: UNK
     Dates: start: 20090101
  3. IBUPROFEN [Concomitant]
     Dosage: 800 MG, UNK
  4. NAPROXEN [Concomitant]
     Dosage: 375 MG, UNK
  5. METRONIDAZOLE [Concomitant]
     Dosage: 500 MG, UNK
  6. ETODOLAC [Concomitant]
     Dosage: 400 MG, UNK

REACTIONS (4)
  - PAIN [None]
  - MYOCARDIAL INFARCTION [None]
  - INTRACARDIAC THROMBUS [None]
  - INJURY [None]
